FAERS Safety Report 10081837 (Version 1)
Quarter: 2014Q2

REPORT INFORMATION
  Report Type: Spontaneous
  Country: FR (occurrence: None)
  Receive Date: 20140414
  Receipt Date: 20140414
  Transmission Date: 20141212
  Serious: Yes (Other)
  Sender: FDA-Public Use
  Company Number: SYM-2014-19585

PATIENT
  Age: 37 Year
  Sex: Female

DRUGS (4)
  1. FLAGYL (METRONIDAZOLE) (400 MILLIGRAM, TABLETS) (METRONIDAZOLE) [Suspect]
     Indication: TOOTH ABSCESS
     Route: 048
     Dates: start: 20140331
  2. AMLOR (AMLODIPINE BESILATE) [Concomitant]
  3. IRON [Concomitant]
  4. SOLUPRED (PREDNISONE) [Concomitant]

REACTIONS (3)
  - Anuria [None]
  - Neuropathy peripheral [None]
  - Pain in extremity [None]
